FAERS Safety Report 7910713-2 (Version None)
Quarter: 2011Q4

REPORT INFORMATION
  Report Type: 
  Country: None (occurrence: None)
  Receive Date: 20111111
  Receipt Date: 20091201
  Transmission Date: 20120403
  Serious: Yes (Other)
  Sender: FDA-Public Use
  Company Number: PHHY2009TW70006

PATIENT

DRUGS (1)
  1. DEFEROXAMINE MESYLATE [Suspect]
     Indication: BLOOD ALUMINIUM INCREASED
     Dosage: 5 MG/KG, EVERY WEEK

REACTIONS (2)
  - DEPRESSED LEVEL OF CONSCIOUSNESS [None]
  - NEUROLOGICAL SYMPTOM [None]
